FAERS Safety Report 16593648 (Version 3)
Quarter: 2019Q3

REPORT INFORMATION
  Report Type: Spontaneous
  Country: RU (occurrence: RU)
  Receive Date: 20190718
  Receipt Date: 20190903
  Transmission Date: 20191004
  Serious: Yes (Hospitalization)
  Sender: FDA-Public Use
  Company Number: RU-SA-2019SA186914

PATIENT
  Age: 68 Year
  Sex: Female
  Weight: 100 kg

DRUGS (1)
  1. ARAVA [Suspect]
     Active Substance: LEFLUNOMIDE
     Indication: RHEUMATOID ARTHRITIS
     Dosage: 20 MG, QD
     Route: 048
     Dates: start: 2015

REACTIONS (3)
  - Neoplasm malignant [Unknown]
  - Arthralgia [Recovering/Resolving]
  - Counterfeit product administered [Unknown]
